FAERS Safety Report 25298358 (Version 2)
Quarter: 2025Q2

REPORT INFORMATION
  Report Type: Spontaneous
  Country: DE (occurrence: DE)
  Receive Date: 20250512
  Receipt Date: 20250522
  Transmission Date: 20250716
  Serious: No
  Sender: ASTELLAS
  Company Number: DE-ASTELLAS-2025-AER-024760

PATIENT
  Sex: Female

DRUGS (1)
  1. VEOZAH [Suspect]
     Active Substance: FEZOLINETANT
     Indication: Product used for unknown indication
     Route: 050

REACTIONS (1)
  - Hepatic enzyme increased [Unknown]
